FAERS Safety Report 23239380 (Version 1)
Quarter: 2023Q4

REPORT INFORMATION
  Report Type: Spontaneous
  Country: US (occurrence: US)
  Receive Date: 20231129
  Receipt Date: 20231129
  Transmission Date: 20240110
  Serious: No
  Sender: FDA-Public Use
  Company Number: US-ABBVIE-5518211

PATIENT

DRUGS (1)
  1. CREON [Suspect]
     Active Substance: PANCRELIPASE AMYLASE\PANCRELIPASE LIPASE\PANCRELIPASE PROTEASE
     Indication: Pancreatic failure
     Dosage: CREON 24000 TAKE 3 PILLS THREE TIMES A DAY
     Route: 048

REACTIONS (3)
  - Diabetes mellitus [Unknown]
  - Gastrointestinal disorder [Unknown]
  - Diarrhoea [Unknown]
